FAERS Safety Report 19946709 (Version 1)
Quarter: 2021Q4

REPORT INFORMATION
  Report Type: Spontaneous
  Country: US (occurrence: US)
  Receive Date: 20211013
  Receipt Date: 20211013
  Transmission Date: 20220303
  Serious: Yes (Death, Hospitalization)
  Sender: FDA-Public Use
  Company Number: None

PATIENT
  Age: 19 Year
  Sex: Female
  Weight: 81 kg

DRUGS (1)
  1. TYLENOL EXTRA STRENGTH [Suspect]
     Active Substance: ACETAMINOPHEN
     Indication: Toothache
     Dosage: APPROXIMATELY 25 (500 MG) OVER 5 HOUR PERIOD; TOTAL DOSE: 12500 MG
     Route: 048
     Dates: start: 19990330, end: 19990330

REACTIONS (11)
  - Premature labour [Fatal]
  - Exposure during pregnancy [Fatal]
  - Blood urea increased [Fatal]
  - Blood creatinine increased [Fatal]
  - Troponin increased [Fatal]
  - Acute hepatic failure [Fatal]
  - Accidental overdose [Fatal]
  - Brain oedema [Fatal]
  - Urinary tract candidiasis [Fatal]
  - Fungal infection [Fatal]
  - Foetal distress syndrome [Fatal]
